FAERS Safety Report 22067470 (Version 2)
Quarter: 2023Q1

REPORT INFORMATION
  Report Type: Report from Study
  Country: US (occurrence: US)
  Receive Date: 20230307
  Receipt Date: 20230331
  Transmission Date: 20230417
  Serious: Yes (Death, Other)
  Sender: FDA-Public Use
  Company Number: US-ACADIA PHARMACEUTICALS INC.-ACA-2023-PIM-000581

PATIENT
  Age: 81 Year
  Sex: Male
  Weight: 113 kg

DRUGS (15)
  1. NUPLAZID [Suspect]
     Active Substance: PIMAVANSERIN TARTRATE
     Indication: Parkinson^s disease psychosis
     Dosage: 34 MILLIGRAM, QD
     Route: 048
     Dates: start: 20221103
  2. NUPLAZID [Suspect]
     Active Substance: PIMAVANSERIN TARTRATE
     Dosage: 44 MILLIGRAM, QD (34 MG CAPSULE+ 10 MG TABLET)
     Route: 048
     Dates: start: 20221227
  3. NUPLAZID [Suspect]
     Active Substance: PIMAVANSERIN TARTRATE
     Indication: Parkinson^s disease psychosis
     Dosage: 44 MILLIGRAM, QD (34 MG CAP AND 10 MG TAB)
     Route: 048
     Dates: start: 20221227
  4. SINEMET CR [Concomitant]
     Active Substance: CARBIDOPA\LEVODOPA
     Dosage: 25-100 MG, TAKE 3 TABLETS BY MOUTH AT 6 AM, 10 AM, 2 PM, 6 PM, AND 2 TABLETS AT 10 PM (PATIENT TAKIN
     Dates: start: 20220409
  5. SINEMET [Concomitant]
     Active Substance: CARBIDOPA\LEVODOPA
     Dosage: 25-100 MG,  TAKE 1 TABLET BY MOUTH AT 6 AM, 10 AM, 2 PM, 6 PM, AND 10 PM (PATIENT TAKING DIFFERENTLY
     Dates: start: 20220705
  6. LANOLIN;MINERAL OIL;PETROLATUM [Concomitant]
     Dosage: INSTILL TO EYE DAILY AS NEEDED
     Route: 047
  7. RESTASIS [Concomitant]
     Active Substance: CYCLOSPORINE
     Dosage: 0.05%, INSTILL 1 DROP INTO BOTH EYES TWICE A DAY
     Route: 047
     Dates: start: 20210309
  8. MUCINEX [Concomitant]
     Active Substance: GUAIFENESIN
     Indication: Cough
     Dosage: 600 MILLIGRAM, TAKE 1 TABLET BY MOUTH EVERY 12 HOURS
     Dates: start: 20221005
  9. SEROQUEL [Concomitant]
     Active Substance: QUETIAPINE FUMARATE
     Indication: Parkinson^s disease
     Dosage: 25 MILLIGRAM, 1 TABLET AT 6 PM AND 3 TABLET AT BEDTIME
     Dates: start: 20221005, end: 20221101
  10. EXELON [Concomitant]
     Active Substance: RIVASTIGMINE TARTRATE
     Indication: Parkinson^s disease
     Dosage: 4.6 MG/24 HOUR, PLACE 1 PATCH ON THE SKIN IN THE MORNING
     Route: 062
     Dates: start: 20221005, end: 20230125
  11. EXELON [Concomitant]
     Active Substance: RIVASTIGMINE TARTRATE
     Indication: Cognitive disorder
     Dosage: 9.5 MG/24 HOUR, PLACE 1 PATCH ON THE SKIN IN THE MORNING
     Route: 062
     Dates: start: 20221005, end: 20230125
  12. EXELON [Concomitant]
     Active Substance: RIVASTIGMINE TARTRATE
     Indication: Hallucination
  13. DETROL LA [Concomitant]
     Active Substance: TOLTERODINE TARTRATE
     Indication: Enuresis
     Dosage: 4 MILLIGRAM, 24 HOUR, TAKE 1 CAPSULE BY MOUTH IN THE MORNING
     Route: 048
     Dates: start: 20221005
  14. MIRALAX [Concomitant]
     Active Substance: POLYETHYLENE GLYCOL 3350
     Indication: Anal incontinence
  15. THERATEARS [Concomitant]
     Active Substance: CARBOXYMETHYLCELLULOSE SODIUM

REACTIONS (6)
  - Death [Fatal]
  - Paranoia [Unknown]
  - Dementia [Not Recovered/Not Resolved]
  - Aggression [Unknown]
  - Drug ineffective [Not Recovered/Not Resolved]
  - Prescribed overdose [Not Recovered/Not Resolved]

NARRATIVE: CASE EVENT DATE: 20221031
